FAERS Safety Report 7951875-0 (Version None)
Quarter: 2011Q4

REPORT INFORMATION
  Report Type: 
  Country: None (occurrence: None)
  Receive Date: 20111201
  Receipt Date: 20111201
  Transmission Date: 20120403
  Serious: No
  Sender: FDA-Public Use
  Company Number: None

PATIENT
  Age: 46 Year
  Sex: Female
  Weight: 54.431 kg

DRUGS (1)
  1. LATISSE [Suspect]
     Indication: MADAROSIS
     Dates: start: 20101101, end: 20110101

REACTIONS (1)
  - SKIN DISCOLOURATION [None]
